FAERS Safety Report 21028096 (Version 4)
Quarter: 2022Q3

REPORT INFORMATION
  Report Type: Report from Study
  Country: MX (occurrence: MX)
  Receive Date: 20220630
  Receipt Date: 20220716
  Transmission Date: 20221027
  Serious: Yes (Other)
  Sender: FDA-Public Use
  Company Number: MX-NOVARTISPH-NVSC2022MX086132

PATIENT
  Age: 54 Year
  Sex: Female
  Weight: 53 kg

DRUGS (4)
  1. EXFORGE [Suspect]
     Active Substance: AMLODIPINE BESYLATE\VALSARTAN
     Indication: Hypertension
     Dosage: 0.5 DOSAGE FORM, QD
     Route: 048
     Dates: start: 202110
  2. EXFORGE [Suspect]
     Active Substance: AMLODIPINE BESYLATE\VALSARTAN
     Dosage: 1 DOSAGE FORM, QD
     Route: 048
     Dates: start: 202111
  3. EXFORGE [Suspect]
     Active Substance: AMLODIPINE BESYLATE\VALSARTAN
     Dosage: 0.5 DOSAGE FORM, QD
     Route: 048
  4. EXFORGE [Suspect]
     Active Substance: AMLODIPINE BESYLATE\VALSARTAN
     Dosage: 1 DOSAGE FORM
     Route: 065

REACTIONS (13)
  - Aphonia [Recovering/Resolving]
  - Blood pressure decreased [Recovered/Resolved]
  - COVID-19 [Unknown]
  - Cough [Recovering/Resolving]
  - Hypertension [Recovering/Resolving]
  - Feeling abnormal [Unknown]
  - Ear pain [Unknown]
  - Headache [Unknown]
  - Dyspepsia [Unknown]
  - Ligament sprain [Recovered/Resolved]
  - Gait disturbance [Unknown]
  - Off label use [Unknown]
  - Wrong technique in product usage process [Not Recovered/Not Resolved]

NARRATIVE: CASE EVENT DATE: 20211001
